FAERS Safety Report 14168000 (Version 2)
Quarter: 2018Q3

REPORT INFORMATION
  Report Type: Spontaneous
  Country: US (occurrence: US)
  Receive Date: 20171108
  Receipt Date: 20180713
  Transmission Date: 20181010
  Serious: Yes (Other)
  Sender: FDA-Public Use
  Company Number: US-ASTRAZENECA-2017SF12091

PATIENT
  Age: 51 Year
  Sex: Female
  Weight: 95.3 kg

DRUGS (34)
  1. NEXIUM [Suspect]
     Active Substance: ESOMEPRAZOLE MAGNESIUM
     Indication: GASTROOESOPHAGEAL REFLUX DISEASE
     Route: 048
     Dates: start: 2013, end: 2015
  2. PANTOPRAZOLE [Suspect]
     Active Substance: PANTOPRAZOLE
     Route: 065
  3. CIMETIDINE [Concomitant]
     Active Substance: CIMETIDINE
     Dosage: OTC
  4. TAGAMET HB [Concomitant]
     Active Substance: CIMETIDINE
     Dosage: OTC
  5. ZANTAC [Concomitant]
     Active Substance: RANITIDINE HYDROCHLORIDE
     Dosage: 150
  6. ZYVOX [Concomitant]
     Active Substance: LINEZOLID
     Dosage: 600.0MG UNKNOWN
     Dates: start: 20150317
  7. HYDROCODON?ACETAMINOPHEN [Concomitant]
     Active Substance: ACETAMINOPHEN\HYDROCODONE
     Dates: start: 20100113
  8. GABAPENTIN. [Concomitant]
     Active Substance: GABAPENTIN
     Dosage: 100.0MG UNKNOWN
     Dates: start: 20110725
  9. MELOXICAM. [Concomitant]
     Active Substance: MELOXICAM
     Dosage: 7.5MG UNKNOWN
     Dates: start: 20110905
  10. CALCITRIOL. [Concomitant]
     Active Substance: CALCITRIOL
     Dosage: 0.25UG UNKNOWN
     Dates: start: 20140612
  11. NEXIUM [Suspect]
     Active Substance: ESOMEPRAZOLE MAGNESIUM
     Indication: GASTROOESOPHAGEAL REFLUX DISEASE
     Dosage: ESOMEPRAZOLE (GENERIC)
     Route: 065
     Dates: start: 2016, end: 201806
  12. CYCLOBENZAPRINE. [Concomitant]
     Active Substance: CYCLOBENZAPRINE
     Dosage: 10.0MG UNKNOWN
     Dates: start: 20111221
  13. ALLOPURINOL. [Concomitant]
     Active Substance: ALLOPURINOL
     Dosage: 100.0MG UNKNOWN
     Dates: start: 20150924
  14. ESCITALOPRAM [Concomitant]
     Active Substance: ESCITALOPRAM OXALATE
     Dosage: 10.0MG UNKNOWN
     Dates: start: 20160831
  15. NEXIUM [Suspect]
     Active Substance: ESOMEPRAZOLE MAGNESIUM
     Indication: GASTROOESOPHAGEAL REFLUX DISEASE
     Route: 048
     Dates: start: 2008, end: 201806
  16. NEXIUM [Suspect]
     Active Substance: ESOMEPRAZOLE MAGNESIUM
     Indication: GASTROOESOPHAGEAL REFLUX DISEASE
     Dosage: 40.0MG UNKNOWN
     Route: 048
     Dates: start: 20110624
  17. MOVANTIC [Concomitant]
     Indication: CONSTIPATION
     Dosage: 1/DAILY
  18. PEPCID [Concomitant]
     Active Substance: FAMOTIDINE
  19. PROMETHAZINE [Concomitant]
     Active Substance: PROMETHAZINE\PROMETHAZINE HYDROCHLORIDE
     Dosage: 25.0MG UNKNOWN
     Dates: start: 20100209
  20. ZOLPIDEM TARTRATE. [Concomitant]
     Active Substance: ZOLPIDEM TARTRATE
     Dosage: 10.0MG UNKNOWN
     Dates: start: 20100209
  21. FUROSEMIDE. [Concomitant]
     Active Substance: FUROSEMIDE
     Dosage: 40.0MG UNKNOWN
     Dates: start: 20150930
  22. NEXIUM [Suspect]
     Active Substance: ESOMEPRAZOLE MAGNESIUM
     Indication: GASTROOESOPHAGEAL REFLUX DISEASE
     Dosage: 40.0MG UNKNOWN
     Route: 048
     Dates: start: 20110624
  23. FERROUS SULFATE. [Concomitant]
     Active Substance: FERROUS SULFATE
     Dosage: 325.0MG UNKNOWN
     Dates: start: 20140513
  24. NEXIUM [Suspect]
     Active Substance: ESOMEPRAZOLE MAGNESIUM
     Indication: GASTROOESOPHAGEAL REFLUX DISEASE
     Route: 048
     Dates: start: 2013, end: 2015
  25. NEXIUM 24HR [Suspect]
     Active Substance: ESOMEPRAZOLE MAGNESIUM
     Route: 048
  26. PREVACID [Suspect]
     Active Substance: LANSOPRAZOLE
     Indication: GASTROOESOPHAGEAL REFLUX DISEASE
     Dosage: 2 DAILY
     Route: 065
  27. AMLODIPINE BESYLATE. [Concomitant]
     Active Substance: AMLODIPINE BESYLATE
     Indication: HYPERTENSION
     Dates: start: 20111018
  28. NEXIUM [Suspect]
     Active Substance: ESOMEPRAZOLE MAGNESIUM
     Indication: GASTROOESOPHAGEAL REFLUX DISEASE
     Dosage: ESOMEPRAZOLE (GENERIC)
     Route: 065
     Dates: start: 2016, end: 201806
  29. PHENAZOPYRIDINE. [Concomitant]
     Active Substance: PHENAZOPYRIDINE
     Dosage: 600.0MG UNKNOWN
     Dates: start: 20150317
  30. NEXIUM [Suspect]
     Active Substance: ESOMEPRAZOLE MAGNESIUM
     Indication: GASTROOESOPHAGEAL REFLUX DISEASE
     Route: 048
     Dates: start: 2008, end: 201806
  31. LOVASTATIN. [Concomitant]
     Active Substance: LOVASTATIN
     Dosage: 20.0MG UNKNOWN
     Dates: start: 20100813
  32. TRAZODONE [Concomitant]
     Active Substance: TRAZODONE HYDROCHLORIDE
     Dosage: 50.0MG UNKNOWN
     Dates: start: 20111004
  33. INDOMETHACIN. [Concomitant]
     Active Substance: INDOMETHACIN
     Dosage: 25.0MG UNKNOWN
     Dates: start: 20111221
  34. HYDROCHLOROTHIAZIDE. [Concomitant]
     Active Substance: HYDROCHLOROTHIAZIDE
     Dosage: 25.0MG UNKNOWN
     Dates: start: 20140513

REACTIONS (5)
  - Nephrogenic anaemia [Unknown]
  - Acute kidney injury [Not Recovered/Not Resolved]
  - End stage renal disease [Unknown]
  - Renal failure [Not Recovered/Not Resolved]
  - Chronic kidney disease [Not Recovered/Not Resolved]

NARRATIVE: CASE EVENT DATE: 2014
